FAERS Safety Report 7233379-6 (Version None)
Quarter: 2011Q1

REPORT INFORMATION
  Report Type: 
  Country: None (occurrence: None)
  Receive Date: 20110119
  Receipt Date: 20110107
  Transmission Date: 20110831
  Serious: Yes (Death, Hospitalization)
  Sender: FDA-Public Use
  Company Number: JP-BRISTOL-MYERS SQUIBB COMPANY-15485204

PATIENT
  Age: 66 Year
  Sex: Male

DRUGS (1)
  1. BRIPLATIN [Suspect]
     Indication: HYPOPHARYNGEAL CANCER
     Route: 041

REACTIONS (2)
  - HISTIOCYTOSIS HAEMATOPHAGIC [None]
  - ERYTHROLEUKAEMIA [None]
